FAERS Safety Report 18479841 (Version 1)
Quarter: 2020Q4

REPORT INFORMATION
  Report Type: Report from Study
  Country: ES (occurrence: ES)
  Receive Date: 20201109
  Receipt Date: 20201109
  Transmission Date: 20210114
  Serious: Yes (Other)
  Sender: FDA-Public Use
  Company Number: ES-TEVA-2020-ES-1845341

PATIENT
  Age: 65 Year
  Sex: Male

DRUGS (4)
  1. TACROLIMUS (2694A) [Concomitant]
     Active Substance: TACROLIMUS
     Dosage: UNIT DOSE : 7 MG
     Route: 048
     Dates: start: 20200315, end: 20200316
  2. HIDROXICLOROQUINA SULFATO (2143SU) [Suspect]
     Active Substance: HYDROXYCHLOROQUINE SULFATE
     Indication: COVID-19
     Dosage: UNIT DOSE : 800MG
     Route: 048
     Dates: start: 20200316, end: 20200318
  3. REZOLSTA 800 MG/150 MG COMPRIMIDOS RECUBIERTOS CON PELICULA, 30 COMPRI [Suspect]
     Active Substance: COBICISTAT\DARUNAVIR ETHANOLATE
     Indication: COVID-19
     Dosage: UNIT DOSE : 800MG
     Route: 048
     Dates: start: 20200315, end: 20200316
  4. AMOXICILINA + ACIDO CLAVULANICO [Concomitant]
     Active Substance: AMOXICILLIN\CLAVULANIC ACID
     Indication: COVID-19
     Dosage: UNIT DOSE : 3G
     Route: 042
     Dates: start: 20200315, end: 20200318

REACTIONS (1)
  - Hepatitis [Recovered/Resolved]

NARRATIVE: CASE EVENT DATE: 20200317
